FAERS Safety Report 4914772-0 (Version None)
Quarter: 2006Q1

REPORT INFORMATION
  Report Type: 
  Country: None (occurrence: None)
  Receive Date: 20060113
  Receipt Date: 20051108
  Transmission Date: 20060701
  Serious: No
  Sender: FDA-Public Use
  Company Number: 2005SP001334

PATIENT
  Age: 79 Year
  Sex: Female
  Weight: 75.2971 kg

DRUGS (9)
  1. LUNESTA [Suspect]
     Indication: INSOMNIA
     Dosage: 4 MG;HS;ORAL
     Route: 048
     Dates: start: 20050519, end: 20050521
  2. LUNESTA [Suspect]
     Dosage: 3 MG;HS;ORAL
     Route: 048
     Dates: start: 20050607, end: 20050608
  3. LUNESTA [Suspect]
  4. LUNESTA [Suspect]
     Dosage: 2 MG;HS;ORAL
     Route: 048
     Dates: start: 20050101
  5. PRIMIDONE [Concomitant]
  6. VALSARTAN [Concomitant]
  7. SIMVASTATIN [Concomitant]
  8. TIKOSYN [Concomitant]
  9. WARFARIN SODIUM [Concomitant]

REACTIONS (2)
  - BALANCE DISORDER [None]
  - SOMNOLENCE [None]
